FAERS Safety Report 7606624-2 (Version None)
Quarter: 2011Q3

REPORT INFORMATION
  Report Type: 
  Country: None (occurrence: None)
  Receive Date: 20110713
  Receipt Date: 20110711
  Transmission Date: 20111222
  Serious: Yes (Hospitalization)
  Sender: FDA-Public Use
  Company Number: GXKR2011DE02241

PATIENT
  Sex: Male
  Weight: 26.5 kg

DRUGS (2)
  1. IBUPROFEN [Suspect]
     Indication: JUVENILE ARTHRITIS
     Dosage: 800 MG, UNK
     Route: 065
     Dates: start: 20050101
  2. METHOTREXATE [Suspect]
     Indication: JUVENILE ARTHRITIS
     Dosage: 10 MG, UNK
     Route: 065
     Dates: start: 20050128, end: 20051201

REACTIONS (1)
  - HISTIOCYTOSIS HAEMATOPHAGIC [None]
